FAERS Safety Report 5207485-1 (Version None)
Quarter: 2007Q1

REPORT INFORMATION
  Report Type: 
  Country: None (occurrence: None)
  Receive Date: 20070112
  Receipt Date: 20070103
  Transmission Date: 20070707
  Serious: Yes (Life-Threatening, Hospitalization)
  Sender: FDA-Public Use
  Company Number: DE-ABBOTT-02P-062-0197673-00

PATIENT
  Sex: Female

DRUGS (7)
  1. NORMALIP PRO [Suspect]
     Indication: HYPERLIPIDAEMIA
     Route: 048
     Dates: end: 20010412
  2. PHENPROCOUMON [Suspect]
     Indication: CEREBROVASCULAR ACCIDENT
     Route: 048
     Dates: end: 20010412
  3. ATORVASTATIN CALCIUM [Suspect]
     Indication: HYPERLIPIDAEMIA
     Route: 048
  4. DIGITOXIN TAB [Concomitant]
     Indication: CARDIAC FAILURE
     Route: 048
     Dates: end: 20010412
  5. GLYBURIDE [Concomitant]
     Indication: DIABETES MELLITUS
     Route: 048
  6. AMLODIPINE BESYLATE [Concomitant]
     Indication: CORONARY ARTERY DISEASE
     Route: 048
  7. CARBAMAZEPINE [Concomitant]
     Indication: DRUG USE FOR UNKNOWN INDICATION
     Route: 048

REACTIONS (2)
  - CEREBRAL HAEMORRHAGE [None]
  - HYPERTENSION [None]
